FAERS Safety Report 7459562-2 (Version None)
Quarter: 2011Q2

REPORT INFORMATION
  Report Type: 
  Country: None (occurrence: None)
  Receive Date: 20110427
  Receipt Date: 20110415
  Transmission Date: 20111010
  Serious: Yes (Disabling)
  Sender: FDA-Public Use
  Company Number: WAES 1104USA02673

PATIENT
  Age: 72 Year
  Sex: Male

DRUGS (7)
  1. PLACEBO [Suspect]
     Indication: ACUTE CORONARY SYNDROME
     Dosage: PO ; PO
     Route: 048
     Dates: start: 20071210
  2. PLACEBO [Suspect]
     Indication: ACUTE CORONARY SYNDROME
     Dosage: PO ; PO
     Route: 048
     Dates: start: 20071210
  3. VYTORIN [Suspect]
     Indication: ACUTE CORONARY SYNDROME
     Dosage: 10-40 MG/DAILY PO
     Route: 048
     Dates: start: 20071210
  4. COVERSYL (PERINDOPRIL ARGININE) [Concomitant]
  5. NEBIVOLOL HCL [Concomitant]
  6. KAREGIC [Concomitant]
  7. OMEPRAZOLE [Concomitant]

REACTIONS (2)
  - TREMOR [None]
  - DEMYELINATING POLYNEUROPATHY [None]
